FAERS Safety Report 5139291-0 (Version None)
Quarter: 2006Q4

REPORT INFORMATION
  Report Type: 
  Country: None (occurrence: None)
  Receive Date: 20061024
  Receipt Date: 20061017
  Transmission Date: 20070319
  Serious: Yes (Other)
  Sender: FDA-Public Use
  Company Number: 230215

PATIENT
  Age: 37 Year
  Sex: Male
  Weight: 84.4 kg

DRUGS (9)
  1. XOLAIR [Suspect]
     Indication: ASTHMA
     Dosage: 150 MG, Q2W, SUBCUTANEOUS
     Route: 058
     Dates: start: 20050928, end: 20060929
  2. ADVAIR DISKUS 100/50 [Concomitant]
  3. FLOVENT [Concomitant]
  4. NASONEX [Concomitant]
  5. COMBIVENT [Concomitant]
  6. ALBUTEROL (ALBUTEROL/ALBUTEROL SUFATE) [Concomitant]
  7. PROPECIA [Concomitant]
  8. LAMICTAL [Concomitant]
  9. PREDNISONE TAB [Concomitant]

REACTIONS (5)
  - ALLERGIC GRANULOMATOUS ANGIITIS [None]
  - DIARRHOEA [None]
  - HYPEREOSINOPHILIC SYNDROME [None]
  - HYPOAESTHESIA [None]
  - PARAESTHESIA [None]
